FAERS Safety Report 8447281-5 (Version None)
Quarter: 2012Q2

REPORT INFORMATION
  Report Type: 
  Country: None (occurrence: None)
  Receive Date: 20120619
  Receipt Date: 20120611
  Transmission Date: 20120825
  Serious: Yes (Other)
  Sender: FDA-Public Use
  Company Number: PHHY2012FR051127

PATIENT
  Sex: Female
  Weight: 18 kg

DRUGS (2)
  1. RITALIN [Suspect]
     Dosage: 5 MG, BID
     Dates: start: 20120425, end: 20120504
  2. RITALIN [Suspect]
     Dates: start: 20120415

REACTIONS (5)
  - HEADACHE [None]
  - NAUSEA [None]
  - BLOOD PRESSURE DECREASED [None]
  - PALPITATIONS [None]
  - HEART RATE INCREASED [None]
